FAERS Safety Report 10231862 (Version 1)
Quarter: 2014Q2

REPORT INFORMATION
  Report Type: Spontaneous
  Country: FR (occurrence: FR)
  Receive Date: 20140612
  Receipt Date: 20140612
  Transmission Date: 20141212
  Serious: Yes (Hospitalization)
  Sender: FDA-Public Use
  Company Number: FR-ROCHE-1414246

PATIENT
  Age: 72 Year
  Sex: Female

DRUGS (11)
  1. TAMIFLU [Suspect]
     Indication: PRODUCT USED FOR UNKNOWN INDICATION
     Route: 048
     Dates: start: 20140401, end: 20140403
  2. ROVAMYCINE [Suspect]
     Indication: PRODUCT USED FOR UNKNOWN INDICATION
     Dosage: 4.5 MUI
     Route: 042
     Dates: start: 20140401, end: 20140402
  3. CEFTRIAXONE [Suspect]
     Indication: PRODUCT USED FOR UNKNOWN INDICATION
     Route: 042
     Dates: start: 20140401, end: 20140402
  4. RAMIPRIL [Concomitant]
     Route: 065
  5. ADALATE [Concomitant]
     Route: 065
  6. THERALENE (FRANCE) [Concomitant]
     Dosage: 20 DROPS PER DAY
     Route: 065
  7. LORAZEPAM [Concomitant]
     Route: 065
  8. LANTUS SOLOSTAR [Concomitant]
  9. PROTHIADEN [Concomitant]
     Route: 065
  10. ESOMEPRAZOLE [Concomitant]
     Route: 065
  11. TRAMADOL [Concomitant]
     Dosage: PROLONGED RELEASE
     Route: 065

REACTIONS (1)
  - Acute generalised exanthematous pustulosis [Recovering/Resolving]
